FAERS Safety Report 11849652 (Version 1)
Quarter: 2015Q4

REPORT INFORMATION
  Report Type: Spontaneous
  Country: US (occurrence: US)
  Receive Date: 20151218
  Receipt Date: 20151218
  Transmission Date: 20160305
  Serious: Yes (Other)
  Sender: FDA-Public Use
  Company Number: US-SA-2015SA210978

PATIENT
  Age: 68 Year
  Sex: Female

DRUGS (5)
  1. METOPROLOL [Concomitant]
     Active Substance: METOPROLOL
     Dates: start: 201509
  2. METOPROLOL [Concomitant]
     Active Substance: METOPROLOL
     Dates: start: 201510
  3. LEVOTHYROXINE. [Concomitant]
     Active Substance: LEVOTHYROXINE
  4. MULTAQ [Suspect]
     Active Substance: DRONEDARONE
     Indication: ATRIAL FIBRILLATION
     Route: 065
     Dates: start: 201509
  5. SPIRONOLACTONE. [Concomitant]
     Active Substance: SPIRONOLACTONE

REACTIONS (5)
  - Gait disturbance [Unknown]
  - Atrial fibrillation [Recovered/Resolved]
  - Heart rate decreased [Unknown]
  - Drug administration error [Unknown]
  - Fatigue [Unknown]
